FAERS Safety Report 7283022-5 (Version None)
Quarter: 2011Q1

REPORT INFORMATION
  Report Type: 
  Country: None (occurrence: None)
  Receive Date: 20110204
  Receipt Date: 20110204
  Transmission Date: 20110831
  Serious: No
  Sender: FDA-Public Use
  Company Number: None

PATIENT
  Age: 35 Year
  Sex: Female

DRUGS (1)
  1. ACETAMINOPHEN 500 MG DISTRIBUTED BY CVS [Suspect]
     Indication: PAIN
     Dosage: 500 MG ONCE BY MOUTH
     Route: 048
     Dates: start: 20110110

REACTIONS (2)
  - DIZZINESS [None]
  - VISION BLURRED [None]
